FAERS Safety Report 5290803-6 (Version None)
Quarter: 2007Q2

REPORT INFORMATION
  Report Type: 
  Country: None (occurrence: None)
  Receive Date: 20070409
  Receipt Date: 20070327
  Transmission Date: 20071010
  Serious: Yes (Life-Threatening, Hospitalization)
  Sender: FDA-Public Use
  Company Number: FR-PFIZER INC-2007016657

PATIENT
  Sex: Female

DRUGS (4)
  1. CHAMPIX [Suspect]
     Dates: start: 20070201, end: 20070201
  2. DEXTROPROPOXYPHENE HYDROCHLORIDE [Concomitant]
     Route: 048
  3. PARACETAMOL [Concomitant]
     Dosage: TEXT:4 CAPSULES-FREQ:DAILY
     Route: 048
     Dates: start: 20040101
  4. ACETYLSALICYLIC ACID SRT [Concomitant]

REACTIONS (3)
  - ABNORMAL BEHAVIOUR [None]
  - SUICIDAL IDEATION [None]
  - SUICIDE ATTEMPT [None]
